FAERS Safety Report 21263908 (Version 1)
Quarter: 2022Q3

REPORT INFORMATION
  Report Type: Spontaneous
  Country: JP (occurrence: None)
  Receive Date: 20220829
  Receipt Date: 20220829
  Transmission Date: 20221026
  Serious: Yes (Hospitalization, Other)
  Sender: FDA-Public Use
  Company Number: JP-MLMSERVICE-20220817-3741016-1

PATIENT
  Age: 89 Year
  Sex: Male

DRUGS (4)
  1. FUROSEMIDE [Concomitant]
     Active Substance: FUROSEMIDE
     Indication: Cardiac failure congestive
     Dosage: ()
     Route: 042
  2. CEFTAZIDIME [Suspect]
     Active Substance: CEFTAZIDIME
     Indication: Enterobacter pneumonia
  3. TOLVAPTAN [Suspect]
     Active Substance: TOLVAPTAN
     Dosage: ()
     Route: 048
  4. PREDNISOLONE [Concomitant]
     Active Substance: PREDNISOLONE
     Indication: Pneumonia

REACTIONS (3)
  - Eosinophilia [Recovering/Resolving]
  - Erythema [Recovering/Resolving]
  - Acquired factor V deficiency [Recovered/Resolved]
